FAERS Safety Report 13638556 (Version 2)
Quarter: 2018Q1

REPORT INFORMATION
  Report Type: Report from Study
  Country: US (occurrence: US)
  Receive Date: 20170609
  Receipt Date: 20180104
  Transmission Date: 20180508
  Serious: Yes (Hospitalization)
  Sender: FDA-Public Use
  Company Number: GXBR2017US001767

PATIENT
  Sex: Female

DRUGS (1)
  1. OMNITROPE [Suspect]
     Active Substance: SOMATROPIN
     Indication: PRODUCT USED FOR UNKNOWN INDICATION
     Dosage: UNK DF, UNK
     Route: 065

REACTIONS (7)
  - Neoplasm malignant [Unknown]
  - Fibroma [Unknown]
  - Breast haematoma [Unknown]
  - Post procedural complication [Unknown]
  - Pneumothorax [Unknown]
  - Malaise [Unknown]
  - Nodule [Unknown]
